FAERS Safety Report 13583711 (Version 3)
Quarter: 2017Q2

REPORT INFORMATION
  Report Type: Spontaneous
  Country: US (occurrence: US)
  Receive Date: 20170526
  Receipt Date: 20170616
  Transmission Date: 20170830
  Serious: Yes (Hospitalization, Other)
  Sender: FDA-Public Use
  Company Number: US-AMGEN-USASP2017078284

PATIENT
  Sex: Male

DRUGS (1)
  1. ENBREL [Suspect]
     Active Substance: ETANERCEPT
     Indication: PSORIATIC ARTHROPATHY
     Dosage: 50 MG, QWK
     Route: 065
     Dates: start: 2001, end: 201705

REACTIONS (3)
  - Thyroidectomy [Recovering/Resolving]
  - Intervertebral disc protrusion [Recovering/Resolving]
  - Radical neck dissection [Recovering/Resolving]

NARRATIVE: CASE EVENT DATE: 2010
